FAERS Safety Report 24044656 (Version 1)
Quarter: 2024Q3

REPORT INFORMATION
  Report Type: Spontaneous
  Country: AU (occurrence: AU)
  Receive Date: 20240703
  Receipt Date: 20240703
  Transmission Date: 20241017
  Serious: Yes (Other)
  Sender: ASTELLAS
  Company Number: AU-ASTELLAS-2024US018540

PATIENT
  Age: 78 Year
  Sex: Male

DRUGS (3)
  1. XOSPATA [Suspect]
     Active Substance: GILTERITINIB
     Indication: Acute myeloid leukaemia
     Dosage: 80 MG, ONCE DAILY (TOOK EVERY MONTH TILL SEP-2023)
     Route: 065
     Dates: start: 202305, end: 202309
  2. XOSPATA [Suspect]
     Active Substance: GILTERITINIB
     Indication: Myeloproliferative neoplasm
     Dosage: 120 MG, ONCE DAILY (TOOK EVERY MONTH TILL JUN-2024)
     Route: 065
     Dates: start: 202310, end: 202406
  3. XOSPATA [Suspect]
     Active Substance: GILTERITINIB
     Indication: FLT3 gene mutation

REACTIONS (3)
  - Acute myeloid leukaemia [Unknown]
  - Intentional underdose [Unknown]
  - Off label use [Unknown]

NARRATIVE: CASE EVENT DATE: 20230501
